FAERS Safety Report 16347823 (Version 6)
Quarter: 2020Q1

REPORT INFORMATION
  Report Type: Report from Study
  Country: US (occurrence: US)
  Receive Date: 20190523
  Receipt Date: 20200207
  Transmission Date: 20200409
  Serious: Yes (Hospitalization, Other)
  Sender: FDA-Public Use
  Company Number: US-ACTELION-A-US2019-190750

PATIENT
  Age: 3 Year
  Sex: Female

DRUGS (17)
  1. WARFARIN [Concomitant]
     Active Substance: WARFARIN
  2. ALBUTEROL. [Concomitant]
     Active Substance: ALBUTEROL
  3. FLOVENT [Concomitant]
     Active Substance: FLUTICASONE PROPIONATE
  4. DIURIL [Concomitant]
     Active Substance: CHLOROTHIAZIDE
  5. TRACLEER [Suspect]
     Active Substance: BOSENTAN
     Dosage: 1/2 TABLET BID
     Route: 048
  6. AMOXICILLIN. [Concomitant]
     Active Substance: AMOXICILLIN
  7. ENOXAPARIN [Concomitant]
     Active Substance: ENOXAPARIN
  8. FAMOTIDINE. [Concomitant]
     Active Substance: FAMOTIDINE
  9. TRACLEER [Suspect]
     Active Substance: BOSENTAN
     Indication: PULMONARY ARTERIAL HYPERTENSION
     Dosage: 16 MG, BID
     Route: 048
     Dates: start: 20181130
  10. ASPIRIN. [Concomitant]
     Active Substance: ASPIRIN
  11. SPIRONOLACTONE. [Concomitant]
     Active Substance: SPIRONOLACTONE
  12. RANITIDINE. [Concomitant]
     Active Substance: RANITIDINE
  13. LEVETIRACETAM. [Concomitant]
     Active Substance: LEVETIRACETAM
  14. LIDOCAINE/PRILOCAINE [Concomitant]
     Active Substance: LIDOCAINE\PRILOCAINE
  15. FUROSEMIDE. [Concomitant]
     Active Substance: FUROSEMIDE
  16. VITAMIN D3 [Concomitant]
     Active Substance: CHOLECALCIFEROL
  17. POTASSIUM CHLORIDE. [Concomitant]
     Active Substance: POTASSIUM CHLORIDE

REACTIONS (5)
  - Cerebrovascular accident [Not Recovered/Not Resolved]
  - Dehydration [Unknown]
  - Seizure [Recovered/Resolved]
  - Fall [Not Recovered/Not Resolved]
  - Cerebral haemorrhage [Not Recovered/Not Resolved]

NARRATIVE: CASE EVENT DATE: 2019
